FAERS Safety Report 6531660-7 (Version None)
Quarter: 2010Q1

REPORT INFORMATION
  Report Type: 
  Country: None (occurrence: None)
  Receive Date: 20100108
  Receipt Date: 20100106
  Transmission Date: 20100710
  Serious: Yes (Hospitalization, Other)
  Sender: FDA-Public Use
  Company Number: GB-BRISTOL-MYERS SQUIBB COMPANY-14303937

PATIENT
  Age: 28 Year
  Sex: Female
  Weight: 73 kg

DRUGS (7)
  1. ABILIFY [Suspect]
     Indication: SCHIZOPHRENIA
     Route: 048
     Dates: start: 20080501, end: 20080716
  2. AMISULPRIDE [Concomitant]
     Dosage: DECREASED TO 200MG MANE,400MG NOCTE.
  3. CITALOPRAM HYDROBROMIDE [Concomitant]
  4. DIAZEPAM [Concomitant]
     Dosage: 2MG MANE AND 4MG NOCTE
  5. HALOPERIDOL [Concomitant]
  6. LORAZEPAM [Concomitant]
  7. TEMAZEPAM [Concomitant]

REACTIONS (9)
  - AGGRESSION [None]
  - CONTUSION [None]
  - DEPRESSED MOOD [None]
  - DISEASE RECURRENCE [None]
  - GROIN ABSCESS [None]
  - HALLUCINATION [None]
  - PARANOIA [None]
  - SELF INJURIOUS BEHAVIOUR [None]
  - SLEEP DISORDER [None]
